FAERS Safety Report 9632046 (Version 1)
Quarter: 2013Q4

REPORT INFORMATION
  Report Type: Spontaneous
  Country: US (occurrence: None)
  Receive Date: 20131017
  Receipt Date: 20131017
  Transmission Date: 20140711
  Serious: Yes (Hospitalization, Disabling)
  Sender: FDA-Public Use
  Company Number: None

PATIENT
  Age: 90 Year
  Sex: Male
  Weight: 70.31 kg

DRUGS (1)
  1. POTASSIUN CHLORIDE [Suspect]
     Route: 042

REACTIONS (2)
  - Dehydration [None]
  - Blister [None]
